FAERS Safety Report 12453201 (Version 3)
Quarter: 2016Q3

REPORT INFORMATION
  Report Type: Report from Study
  Country: US (occurrence: US)
  Receive Date: 20160609
  Receipt Date: 20160815
  Transmission Date: 20161109
  Serious: Yes (Hospitalization, Other)
  Sender: FDA-Public Use
  Company Number: US-ALEXION PHARMACEUTICALS INC-A201604075

PATIENT
  Age: 29 Year
  Sex: Male
  Weight: 99.2 kg

DRUGS (2)
  1. SOLIRIS [Suspect]
     Active Substance: ECULIZUMAB
     Indication: HAEMOLYTIC URAEMIC SYNDROME
     Dosage: 900 MG, Q2W
     Route: 042
     Dates: start: 20140403
  2. SOLIRIS [Suspect]
     Active Substance: ECULIZUMAB
     Dosage: 1200 MG, UNK
     Route: 042
     Dates: start: 2014

REACTIONS (9)
  - Cough [Unknown]
  - Inappropriate schedule of drug administration [Recovered/Resolved]
  - Bacteraemia [Unknown]
  - Meningitis meningococcal [Recovered/Resolved]
  - Hypotension [Unknown]
  - Tachycardia [Not Recovered/Not Resolved]
  - Sepsis [Unknown]
  - Myalgia [Unknown]
  - Dehydration [Unknown]

NARRATIVE: CASE EVENT DATE: 20140403
